FAERS Safety Report 13893246 (Version 1)
Quarter: 2017Q3

REPORT INFORMATION
  Report Type: Spontaneous
  Country: US (occurrence: US)
  Receive Date: 20170822
  Receipt Date: 20170822
  Transmission Date: 20171127
  Serious: No
  Sender: FDA-Public Use
  Company Number: US-ROCHE-730077

PATIENT

DRUGS (2)
  1. ACTEMRA [Suspect]
     Active Substance: TOCILIZUMAB
     Indication: RHEUMATOID ARTHRITIS
     Dosage: FORM: INFUSION
     Route: 042
  2. CYMBALTA [Concomitant]
     Active Substance: DULOXETINE HYDROCHLORIDE
     Route: 065

REACTIONS (7)
  - Palpitations [Unknown]
  - Chills [Unknown]
  - Anxiety [Unknown]
  - Headache [Unknown]
  - Hyperhidrosis [Unknown]
  - Anger [Unknown]
  - Mood swings [Unknown]

NARRATIVE: CASE EVENT DATE: 20100924
